FAERS Safety Report 19468427 (Version 1)
Quarter: 2021Q2

REPORT INFORMATION
  Report Type: Spontaneous
  Country: JP (occurrence: JP)
  Receive Date: 20210628
  Receipt Date: 20210628
  Transmission Date: 20210717
  Serious: Yes (Hospitalization, Other)
  Sender: FDA-Public Use
  Company Number: JP-ROCHE-2858077

PATIENT
  Age: 9 Decade
  Sex: Female

DRUGS (4)
  1. GAZYVA [Suspect]
     Active Substance: OBINUTUZUMAB
     Indication: FOLLICULAR LYMPHOMA
     Dosage: 1000MG/DAY
     Route: 041
     Dates: start: 20210405, end: 20210611
  2. PREDNISOLONE. [Concomitant]
     Active Substance: PREDNISOLONE
     Indication: FOLLICULAR LYMPHOMA
     Dosage: UNK
     Route: 048
     Dates: start: 20210405, end: 20210611
  3. ONCOVIN [Concomitant]
     Active Substance: VINCRISTINE SULFATE
     Indication: FOLLICULAR LYMPHOMA
     Dosage: UNK
     Route: 041
     Dates: start: 20210405, end: 20210611
  4. ENDOXAN [CYCLOPHOSPHAMIDE] [Concomitant]
     Active Substance: CYCLOPHOSPHAMIDE
     Indication: FOLLICULAR LYMPHOMA
     Dosage: UNK
     Route: 041
     Dates: start: 20210405, end: 20210611

REACTIONS (2)
  - Disease progression [Unknown]
  - Lymphadenopathy [Not Recovered/Not Resolved]

NARRATIVE: CASE EVENT DATE: 20210611
